FAERS Safety Report 19245364 (Version 1)
Quarter: 2021Q2

REPORT INFORMATION
  Report Type: Report from Study
  Country: US (occurrence: US)
  Receive Date: 20210511
  Receipt Date: 20210511
  Transmission Date: 20210717
  Serious: Yes (Hospitalization, Other)
  Sender: FDA-Public Use
  Company Number: US-GILEAD-2018-0364595

PATIENT
  Age: 55 Year
  Sex: Male
  Weight: 100.9 kg

DRUGS (30)
  1. FLUDARABINE [Suspect]
     Active Substance: FLUDARABINE PHOSPHATE
     Indication: BONE MARROW CONDITIONING REGIMEN
     Dosage: 30 MG/M2, QD
     Route: 042
     Dates: start: 20180905, end: 20180907
  2. VANCOMYCIN [Concomitant]
     Active Substance: VANCOMYCIN
  3. ALLOPURINOL. [Concomitant]
     Active Substance: ALLOPURINOL
  4. POLYETHYLENE GLYCOL [Concomitant]
     Active Substance: POLYETHYLENE GLYCOLS
  5. LASIX [Concomitant]
     Active Substance: FUROSEMIDE
  6. MESNA. [Suspect]
     Active Substance: MESNA
     Indication: PROPHYLAXIS
     Dosage: 500 MG/M2, QD
     Route: 042
     Dates: start: 20180905, end: 20180907
  7. TOCILIZUMAB. [Concomitant]
     Active Substance: TOCILIZUMAB
  8. FAMOTIDINE. [Concomitant]
     Active Substance: FAMOTIDINE
  9. PROTONIX [OMEPRAZOLE] [Concomitant]
     Active Substance: OMEPRAZOLE
  10. LEVETIRACETAM. [Concomitant]
     Active Substance: LEVETIRACETAM
     Dosage: 500 MG, UNK
     Dates: start: 20180910
  11. MULTIVITAMIN                       /00097801/ [Concomitant]
     Active Substance: VITAMINS
  12. IMMUNOGLOBULIN                     /00025201/ [Concomitant]
     Active Substance: HUMAN IMMUNOGLOBULIN G
  13. BACTRIM DS [Concomitant]
     Active Substance: SULFAMETHOXAZOLE\TRIMETHOPRIM
  14. BENADRYL [Concomitant]
     Active Substance: DIPHENHYDRAMINE HYDROCHLORIDE
  15. KTE?X19 [Suspect]
     Active Substance: BREXUCABTAGENE AUTOLEUCEL
     Indication: MANTLE CELL LYMPHOMA REFRACTORY
     Dosage: 68 ML, ONCE
     Route: 042
     Dates: start: 20180910, end: 20180910
  16. ENOXAPARIN [Concomitant]
     Active Substance: ENOXAPARIN
  17. FILGRASTIM [Concomitant]
     Active Substance: FILGRASTIM
  18. VENLAFAXINE [Concomitant]
     Active Substance: VENLAFAXINE HYDROCHLORIDE
  19. TEMAZEPAM. [Concomitant]
     Active Substance: TEMAZEPAM
  20. APRESOLINE HYDROCHLORIDE [Concomitant]
     Active Substance: HYDRALAZINE HYDROCHLORIDE
  21. TYLENOL [Concomitant]
     Active Substance: ACETAMINOPHEN
  22. CYCLOPHOSPHAMIDE. [Suspect]
     Active Substance: CYCLOPHOSPHAMIDE
     Indication: BONE MARROW CONDITIONING REGIMEN
     Dosage: 500 MG/M2, QD
     Route: 042
     Dates: start: 20180905, end: 20180907
  23. SIMETHICONE (DIMETHICONE) [Concomitant]
     Active Substance: DIMETHICONE
  24. MUPIROCIN. [Concomitant]
     Active Substance: MUPIROCIN
  25. DOCUSATE PLUS SENNA [Concomitant]
     Active Substance: DOCUSATE SODIUM\SENNOSIDES A AND B
  26. VALACYCLOVIR                       /01269701/ [Concomitant]
     Active Substance: VALACYCLOVIR HYDROCHLORIDE
  27. NEURONTIN [Concomitant]
     Active Substance: GABAPENTIN
  28. DOLOPHINE [Concomitant]
     Active Substance: METHADONE HYDROCHLORIDE
  29. CEFEPIME [Concomitant]
     Active Substance: CEFEPIME HYDROCHLORIDE
  30. SODIUM CHLORIDE. [Concomitant]
     Active Substance: SODIUM CHLORIDE

REACTIONS (12)
  - Skin infection [Recovered/Resolved]
  - Platelet count decreased [Recovered/Resolved]
  - Dry skin [Recovered/Resolved]
  - Femur fracture [Recovered/Resolved]
  - Encephalopathy [Recovered/Resolved]
  - Arthritis infective [Recovered/Resolved]
  - Headache [Not Recovered/Not Resolved]
  - Joint effusion [Recovered/Resolved]
  - Platelet count decreased [Recovered/Resolved]
  - Joint effusion [Recovered/Resolved]
  - Headache [Recovered/Resolved with Sequelae]
  - Anaemia [Recovered/Resolved]

NARRATIVE: CASE EVENT DATE: 20180918
